FAERS Safety Report 10854670 (Version 1)
Quarter: 2015Q1

REPORT INFORMATION
  Report Type: Spontaneous
  Country: MX (occurrence: MX)
  Receive Date: 20150223
  Receipt Date: 20150223
  Transmission Date: 20150721
  Serious: Yes (Death)
  Sender: FDA-Public Use
  Company Number: MX-UCBSA-2015005017

PATIENT
  Age: 89 Year
  Sex: Male
  Weight: 60 kg

DRUGS (4)
  1. RASAGILINE [Concomitant]
     Active Substance: RASAGILINE
     Indication: PRODUCT USED FOR UNKNOWN INDICATION
     Dosage: DOSE: 1 MG
     Dates: start: 20150206
  2. NUBRENZA [Suspect]
     Active Substance: ROTIGOTINE
     Indication: ARTHROPATHY
     Dosage: 4 MG, ONCE DAILY (QD) EVERY 24 HOURS)
     Route: 003
     Dates: start: 20150204, end: 20150206
  3. NUBRENZA [Suspect]
     Active Substance: ROTIGOTINE
     Indication: OFF LABEL USE
  4. NIMESULIDE [Concomitant]
     Active Substance: NIMESULIDE
     Indication: PRODUCT USED FOR UNKNOWN INDICATION
     Dosage: 60 ML, 3X/DAY (TID) (EVERY 8 HOURS)
     Dates: start: 20150204

REACTIONS (2)
  - Product use issue [Unknown]
  - Death [Fatal]

NARRATIVE: CASE EVENT DATE: 20150204
